FAERS Safety Report 19401561 (Version 1)
Quarter: 2021Q2

REPORT INFORMATION
  Report Type: Spontaneous
  Country: DE (occurrence: DE)
  Receive Date: 20210611
  Receipt Date: 20210611
  Transmission Date: 20210717
  Serious: Yes (Hospitalization, Other)
  Sender: FDA-Public Use
  Company Number: DE-SUN PHARMACEUTICAL INDUSTRIES LTD-2021RR-299979

PATIENT
  Age: 42 Year
  Sex: Male

DRUGS (4)
  1. FLUPENTIXOL [Suspect]
     Active Substance: FLUPENTIXOL
     Indication: DELUSION
     Dosage: 10 MILLIGRAM, DAILY, DAILY DOSE: 10 MG MILLGRAM(S) EVERY DAYS 2 SEPARATED DOSES
     Route: 048
  2. LEVOMETHADONE [Concomitant]
     Active Substance: LEVOMETHADONE
     Indication: SLEEP DISORDER
     Dosage: 2 MILLILITER, DAILY, DAILY DOSE: 2 ML MILLILITRE(S) EVERY DAYS
     Route: 048
  3. OLANZAPINE. [Suspect]
     Active Substance: OLANZAPINE
     Indication: DELUSION
     Dosage: 20 MILLIGRAM, DAILY, DAILY DOSE: 20 MG MILLGRAM(S) EVERY DAYS 2 SEPARATED DOSES
     Route: 048
     Dates: start: 2009
  4. PROTHIPENDYL [Suspect]
     Active Substance: PROTHIPENDYL
     Indication: SLEEP DISORDER
     Dosage: 160 MILLIGRAM, DAILY, DAILY DOSE: 160 MG MILLGRAM(S) EVERY DAYS
     Route: 048

REACTIONS (1)
  - Type 2 diabetes mellitus [Not Recovered/Not Resolved]

NARRATIVE: CASE EVENT DATE: 20210105
